FAERS Safety Report 19192074 (Version 1)
Quarter: 2021Q2

REPORT INFORMATION
  Report Type: Report from Study
  Country: US (occurrence: US)
  Receive Date: 20210429
  Receipt Date: 20210429
  Transmission Date: 20210717
  Serious: Yes (Hospitalization)
  Sender: FDA-Public Use
  Company Number: US-ORION CORPORATION ORION PHARMA-ENTC2021-0105

PATIENT
  Age: 56 Year
  Sex: Male

DRUGS (10)
  1. GOCOVRI [Suspect]
     Active Substance: AMANTADINE
     Indication: DYSKINESIA
     Dosage: STRENGTH: 137 MG, AT BEDTIME
     Route: 048
     Dates: start: 20180814, end: 20210331
  2. GOCOVRI [Suspect]
     Active Substance: AMANTADINE
     Dosage: BEDTIME ON ODD DAYS
     Route: 048
     Dates: start: 20210104
  3. ENTACAPONE (TRADE NAME UNKNOWN) [Suspect]
     Active Substance: ENTACAPONE
     Indication: PRODUCT USED FOR UNKNOWN INDICATION
     Route: 065
     Dates: start: 20201204, end: 202012
  4. CARBIDOPA;LEVODOPA [Suspect]
     Active Substance: CARBIDOPA\LEVODOPA
     Indication: PRODUCT USED FOR UNKNOWN INDICATION
     Route: 065
     Dates: start: 20201204, end: 202012
  5. STALEVO [Suspect]
     Active Substance: CARBIDOPA\ENTACAPONE\LEVODOPA
     Route: 065
     Dates: start: 202012
  6. GOCOVRI [Suspect]
     Active Substance: AMANTADINE
     Dosage: BEDTIME ON EVEN DAYS
     Route: 048
     Dates: start: 20210204
  7. XANAX [Concomitant]
     Active Substance: ALPRAZOLAM
     Route: 065
  8. SEROQUEL [Concomitant]
     Active Substance: QUETIAPINE FUMARATE
     Route: 065
  9. STALEVO [Suspect]
     Active Substance: CARBIDOPA\ENTACAPONE\LEVODOPA
     Indication: PRODUCT USED FOR UNKNOWN INDICATION
     Route: 065
     Dates: end: 20200312
  10. MIRAPEX [Concomitant]
     Active Substance: PRAMIPEXOLE DIHYDROCHLORIDE
     Route: 065

REACTIONS (9)
  - Fall [Not Recovered/Not Resolved]
  - Lack of spontaneous speech [Not Recovered/Not Resolved]
  - Cellulitis [Recovered/Resolved]
  - Hallucination [Not Recovered/Not Resolved]
  - Loss of personal independence in daily activities [Recovering/Resolving]
  - Incontinence [Not Recovered/Not Resolved]
  - Hospice care [Unknown]
  - Gait inability [Not Recovered/Not Resolved]
  - Head injury [Recovered/Resolved]

NARRATIVE: CASE EVENT DATE: 202012
